FAERS Safety Report 23031867 (Version 1)
Quarter: 2023Q4

REPORT INFORMATION
  Report Type: Spontaneous
  Country: US (occurrence: US)
  Receive Date: 20231005
  Receipt Date: 20231005
  Transmission Date: 20240109
  Serious: Yes (Other)
  Sender: FDA-Public Use
  Company Number: US-SA-SAC20231003000255

PATIENT
  Age: 85 Year
  Sex: Male

DRUGS (1)
  1. KEVZARA [Suspect]
     Active Substance: SARILUMAB
     Indication: Polymyalgia rheumatica
     Dosage: 200 MG, QOW
     Route: 058
     Dates: start: 202305

REACTIONS (4)
  - Basal cell carcinoma [Unknown]
  - Infection [Unknown]
  - Fungal skin infection [Unknown]
  - Onychomycosis [Unknown]

NARRATIVE: CASE EVENT DATE: 20230101
